FAERS Safety Report 13212020 (Version 1)
Quarter: 2017Q1

REPORT INFORMATION
  Report Type: Spontaneous
  Country: IT (occurrence: IT)
  Receive Date: 20170210
  Receipt Date: 20170210
  Transmission Date: 20170428
  Serious: Yes (Other)
  Sender: FDA-Public Use
  Company Number: IT-BAYER-2017-022094

PATIENT
  Age: 76 Year
  Sex: Male

DRUGS (2)
  1. NEXAVAR [Suspect]
     Active Substance: SORAFENIB
     Indication: HEPATIC CANCER
     Dosage: DAILY DOSE 400 MG
     Route: 048
     Dates: start: 20161014, end: 20161028
  2. NEXAVAR [Suspect]
     Active Substance: SORAFENIB
     Indication: HEPATIC CANCER
     Dosage: DAILY DOSE 200 MG
     Route: 048

REACTIONS (1)
  - Hand-foot-genital syndrome [Recovered/Resolved]

NARRATIVE: CASE EVENT DATE: 20161028
